FAERS Safety Report 12698369 (Version 2)
Quarter: 2016Q4

REPORT INFORMATION
  Report Type: Spontaneous
  Country: US (occurrence: US)
  Receive Date: 20160830
  Receipt Date: 20161025
  Transmission Date: 20170207
  Serious: No
  Sender: FDA-Public Use
  Company Number: US-JNJFOC-20160710580

PATIENT
  Sex: Female
  Weight: 26.76 kg

DRUGS (5)
  1. METFORMIN [Concomitant]
     Active Substance: METFORMIN HYDROCHLORIDE
     Route: 065
  2. RISPERDAL CONSTA [Suspect]
     Active Substance: RISPERIDONE
     Indication: PRODUCT USED FOR UNKNOWN INDICATION
     Route: 058
  3. INSULIN [Concomitant]
     Active Substance: INSULIN NOS
     Indication: DIABETES MELLITUS
     Route: 058
  4. RISPERDAL [Suspect]
     Active Substance: RISPERIDONE
     Indication: PRODUCT USED FOR UNKNOWN INDICATION
     Route: 048
  5. FLUPHENAZINE [Concomitant]
     Active Substance: FLUPHENAZINE
     Route: 065

REACTIONS (5)
  - Thinking abnormal [Unknown]
  - Treatment noncompliance [Unknown]
  - Rash [Unknown]
  - Incorrect route of drug administration [Unknown]
  - Off label use [Unknown]
